FAERS Safety Report 18214309 (Version 5)
Quarter: 2022Q3

REPORT INFORMATION
  Report Type: Spontaneous
  Country: MX (occurrence: MX)
  Receive Date: 20200831
  Receipt Date: 20220713
  Transmission Date: 20221026
  Serious: Yes (Hospitalization, Other)
  Sender: FDA-Public Use
  Company Number: MX-GLAXOSMITHKLINE-MX2020AMR152549

PATIENT

DRUGS (1)
  1. NUCALA [Suspect]
     Active Substance: MEPOLIZUMAB
     Indication: Asthma
     Dosage: 100 MG

REACTIONS (17)
  - Pneumonia [Recovering/Resolving]
  - Bronchial obstruction [Unknown]
  - Dizziness [Unknown]
  - Anxiety [Unknown]
  - Heart rate increased [Unknown]
  - Fear [Unknown]
  - Pyrexia [Unknown]
  - Pulmonary pain [Unknown]
  - Asthma [Unknown]
  - Dyspnoea [Unknown]
  - Oxygen saturation decreased [Unknown]
  - Productive cough [Unknown]
  - Loss of personal independence in daily activities [Unknown]
  - Illness [Unknown]
  - Upper limb fracture [Unknown]
  - Accident [Unknown]
  - Product dose omission issue [Unknown]

NARRATIVE: CASE EVENT DATE: 20200801
